FAERS Safety Report 16006510 (Version 1)
Quarter: 2019Q1

REPORT INFORMATION
  Report Type: Spontaneous
  Country: US (occurrence: US)
  Receive Date: 20190226
  Receipt Date: 20190226
  Transmission Date: 20190418
  Serious: No
  Sender: FDA-Public Use
  Company Number: US-FERRINGPH-2018FE05514

PATIENT
  Age: 14 Year
  Sex: Female

DRUGS (1)
  1. STIMATE [Suspect]
     Active Substance: DESMOPRESSIN ACETATE
     Indication: VON WILLEBRAND^S DISEASE
     Dosage: 1 SPRAY IN 1 NOSTRIL DAILY AS NEEDED BLEED
     Route: 045
     Dates: start: 20140715

REACTIONS (3)
  - Pain in extremity [Unknown]
  - Chest pain [Unknown]
  - Abdominal pain upper [Unknown]
